FAERS Safety Report 4932336-X (Version None)
Quarter: 2006Q1

REPORT INFORMATION
  Report Type: 
  Country: None (occurrence: None)
  Receive Date: 20060303
  Receipt Date: 20060222
  Transmission Date: 20060701
  Serious: Yes (Hospitalization, Other)
  Sender: FDA-Public Use
  Company Number: FR-ABBOTT-06P-056-0325908-00

PATIENT
  Age: 7 Year
  Sex: Male

DRUGS (5)
  1. MICROPAKINE GRANULES [Suspect]
     Indication: EPILEPSY
     Route: 048
     Dates: end: 20051001
  2. MICROPAKINE GRANULES [Suspect]
     Route: 048
     Dates: start: 20051001, end: 20060103
  3. LAMOTRIGINE [Suspect]
     Indication: EPILEPSY
     Route: 048
     Dates: end: 20051001
  4. LAMOTRIGINE [Suspect]
     Route: 048
     Dates: start: 20051001, end: 20060103
  5. OXCARBAZEPINE [Suspect]
     Indication: EPILEPSY
     Route: 048
     Dates: start: 20051005

REACTIONS (5)
  - ENCEPHALOPATHY [None]
  - HEPATIC FAILURE [None]
  - HYPERAMMONAEMIA [None]
  - STATUS EPILEPTICUS [None]
  - VARICELLA [None]
